FAERS Safety Report 18890446 (Version 1)
Quarter: 2021Q1

REPORT INFORMATION
  Report Type: Spontaneous
  Country: US (occurrence: US)
  Receive Date: 20210214
  Receipt Date: 20210214
  Transmission Date: 20210420
  Serious: Yes (Other)
  Sender: FDA-Public Use
  Company Number: US-JNJFOC-20210219724

PATIENT
  Age: 54 Year
  Sex: Male

DRUGS (1)
  1. PARACETAMOL [Suspect]
     Active Substance: ACETAMINOPHEN
     Indication: PAIN
     Route: 065
     Dates: start: 2017

REACTIONS (6)
  - Mucosal necrosis [Unknown]
  - Staphylococcal infection [Unknown]
  - Streptococcus test positive [Unknown]
  - Intentional product misuse [Unknown]
  - Sinusitis fungal [Unknown]
  - Resorption bone increased [Unknown]
